FAERS Safety Report 20190141 (Version 9)
Quarter: 2022Q3

REPORT INFORMATION
  Report Type: Spontaneous
  Country: CA (occurrence: CA)
  Receive Date: 20211215
  Receipt Date: 20220922
  Transmission Date: 20221026
  Serious: Yes (Life-Threatening)
  Sender: FDA-Public Use
  Company Number: CA-PFIZER INC-2021682626

PATIENT
  Age: 64 Year
  Sex: Female
  Weight: 63.5 kg

DRUGS (16)
  1. RUXIENCE [Suspect]
     Active Substance: RITUXIMAB-PVVR
     Indication: Granulomatosis with polyangiitis
     Dosage: 630 MG, EVERY 4 WEEKS
     Route: 042
     Dates: start: 20210629, end: 20210719
  2. RUXIENCE [Suspect]
     Active Substance: RITUXIMAB-PVVR
     Dosage: 630 MG, EVERY 4 WEEKS
     Route: 042
     Dates: start: 20210705, end: 20210705
  3. RUXIENCE [Suspect]
     Active Substance: RITUXIMAB-PVVR
     Dosage: 630 MG, EVERY 4 WEEKS
     Route: 042
     Dates: start: 20210705, end: 20210705
  4. RUXIENCE [Suspect]
     Active Substance: RITUXIMAB-PVVR
     Dosage: 630 MG, EVERY 4 WEEKS
     Route: 042
     Dates: start: 20210713, end: 20210713
  5. RUXIENCE [Suspect]
     Active Substance: RITUXIMAB-PVVR
     Dosage: 630 MG, EVERY 4 WEEKS
     Route: 042
     Dates: start: 20210713, end: 20210713
  6. RUXIENCE [Suspect]
     Active Substance: RITUXIMAB-PVVR
     Dosage: 630 MG, EVERY 4 WEEKS
     Route: 042
     Dates: start: 20210719, end: 20210719
  7. RUXIENCE [Suspect]
     Active Substance: RITUXIMAB-PVVR
     Dosage: 1000 MG X 1 DOSE
     Route: 042
     Dates: start: 20211202
  8. RUXIENCE [Suspect]
     Active Substance: RITUXIMAB-PVVR
     Dosage: 1000 MG X 1 DOSE
     Route: 042
     Dates: start: 20220202, end: 20220202
  9. RUXIENCE [Suspect]
     Active Substance: RITUXIMAB-PVVR
     Dosage: 500 MG SINGLE DOSE
     Route: 042
     Dates: start: 20220919, end: 20220919
  10. AMLODIPINE [Concomitant]
     Active Substance: AMLODIPINE BESYLATE
     Dosage: UNK
  11. PREDNISONE [Concomitant]
     Active Substance: PREDNISONE
     Dosage: 60 MG,TAPERING DOSE
     Dates: start: 20201207, end: 202107
  12. ACETAMINOPHEN [Concomitant]
     Active Substance: ACETAMINOPHEN
     Indication: Premedication
     Dosage: 325 MG 15-30 MIN PRE-INFUSION
     Route: 048
     Dates: start: 20210629
  13. ACETAMINOPHEN [Concomitant]
     Active Substance: ACETAMINOPHEN
     Dosage: 650 MG, 15-30 MIN PRE-INFUSION
     Route: 048
     Dates: start: 20210629
  14. METOPROLOL [Concomitant]
     Active Substance: METOPROLOL
     Dosage: 5 MG, 2X/DAY
  15. LEVOTHYROXINE [Concomitant]
     Active Substance: LEVOTHYROXINE
     Dosage: 100 MG, DAILY
  16. PANTOPRAZOLE [Concomitant]
     Active Substance: PANTOPRAZOLE
     Dosage: 40 MG, DAILY

REACTIONS (7)
  - Renal disorder [Unknown]
  - Off label use [Unknown]
  - Off label use [Unknown]
  - Intentional product use issue [Unknown]
  - Off label use [Unknown]
  - Product use issue [Unknown]
  - Psoriasis [Not Recovered/Not Resolved]

NARRATIVE: CASE EVENT DATE: 20210705
